FAERS Safety Report 22257510 (Version 4)
Quarter: 2024Q1

REPORT INFORMATION
  Report Type: Other
  Country: JP (occurrence: JP)
  Receive Date: 20230427
  Receipt Date: 20240103
  Transmission Date: 20240410
  Serious: Yes (Hospitalization)
  Sender: FDA-Public Use
  Company Number: JP-CHUGAI-2023013955

PATIENT
  Age: 71 Year
  Sex: Female
  Weight: 41.7 kg

DRUGS (22)
  1. HEMLIBRA [Suspect]
     Active Substance: EMICIZUMAB-KXWH
     Indication: Acquired haemophilia
     Dosage: 6 MILLIGRAM/KILOGRAM, SINGLE
     Route: 058
     Dates: start: 20221220, end: 20221220
  2. HEMLIBRA [Suspect]
     Active Substance: EMICIZUMAB-KXWH
     Dosage: 3 MILLIGRAM/KILOGRAM, SINGLE
     Route: 058
     Dates: start: 20221221, end: 20221221
  3. HEMLIBRA [Suspect]
     Active Substance: EMICIZUMAB-KXWH
     Dosage: 1.5 MILLIGRAM/KILOGRAM, ONCE/WEEK
     Route: 058
     Dates: start: 20221227, end: 20230403
  4. PREDNISOLONE [Suspect]
     Active Substance: PREDNISOLONE
     Indication: Acquired haemophilia
     Route: 065
     Dates: start: 20221215, end: 20221227
  5. PREDNISOLONE [Suspect]
     Active Substance: PREDNISOLONE
     Route: 065
     Dates: start: 20221228, end: 20230105
  6. PREDNISOLONE [Suspect]
     Active Substance: PREDNISOLONE
     Dosage: 25 MILLIGRAM
     Route: 065
     Dates: start: 20230106, end: 20230117
  7. PREDNISOLONE [Suspect]
     Active Substance: PREDNISOLONE
     Dosage: 20 MILLIGRAM
     Route: 065
     Dates: start: 20230118, end: 20230219
  8. PREDNISOLONE [Suspect]
     Active Substance: PREDNISOLONE
     Dosage: 18 MILLIGRAM /DAY
     Route: 065
     Dates: start: 20230220, end: 20230305
  9. PREDNISOLONE [Suspect]
     Active Substance: PREDNISOLONE
     Dosage: 16 MILLIGRAM /DAY
     Route: 065
     Dates: start: 20230306, end: 20230310
  10. PREDNISOLONE [Suspect]
     Active Substance: PREDNISOLONE
     Dosage: 15 MILLIGRAM /DAY
     Route: 065
     Dates: start: 20230311, end: 20230409
  11. PREDNISOLONE [Suspect]
     Active Substance: PREDNISOLONE
     Dosage: 13 MILLIGRAM /DAY
     Route: 065
     Dates: start: 20230410, end: 20230429
  12. PREDNISOLONE [Suspect]
     Active Substance: PREDNISOLONE
     Dosage: 10 MILLIGRAM /DAY
     Route: 065
     Dates: start: 20230430, end: 20230604
  13. PREDNISOLONE [Suspect]
     Active Substance: PREDNISOLONE
     Dosage: 9 MILLIGRAM /DAY
     Route: 065
     Dates: start: 20230605, end: 20230702
  14. PREDNISOLONE [Suspect]
     Active Substance: PREDNISOLONE
     Dosage: 8 MILLIGRAM /DAY
     Route: 065
     Dates: start: 20230703, end: 20230831
  15. PREDNISOLONE [Suspect]
     Active Substance: PREDNISOLONE
     Dosage: 7 MILLIGRAM /DAY
     Route: 065
     Dates: start: 20230901, end: 20231026
  16. PREDNISOLONE [Suspect]
     Active Substance: PREDNISOLONE
     Dosage: 6 MILLIGRAM /DAY
     Route: 065
     Dates: start: 20231027
  17. CYCLOPHOSPHAMIDE [Suspect]
     Active Substance: CYCLOPHOSPHAMIDE
     Indication: Acquired haemophilia
     Dosage: 100 MILLIGRAM /DAY
     Route: 065
     Dates: start: 20230118, end: 20230219
  18. CYCLOPHOSPHAMIDE [Suspect]
     Active Substance: CYCLOPHOSPHAMIDE
     Dosage: 100 MILLIGRAM /DAY
     Route: 065
     Dates: start: 20230220, end: 20230226
  19. CYCLOPHOSPHAMIDE [Suspect]
     Active Substance: CYCLOPHOSPHAMIDE
     Dosage: 200 MILLIGRAM /DAY
     Route: 065
     Dates: start: 20230227, end: 20230310
  20. CYCLOPHOSPHAMIDE [Suspect]
     Active Substance: CYCLOPHOSPHAMIDE
     Dosage: 100 MILLIGRAM /DAY
     Route: 065
     Dates: start: 20230311, end: 20230319
  21. ANTI-INHIBITOR COAGULANT COMPLEX [Concomitant]
     Active Substance: ANTI-INHIBITOR COAGULANT COMPLEX
     Indication: Haemorrhage
     Dosage: UNK
  22. ANTI-INHIBITOR COAGULANT COMPLEX [Concomitant]
     Active Substance: ANTI-INHIBITOR COAGULANT COMPLEX
     Dosage: 4000 INTERNATIONAL UNIT
     Dates: start: 20221214

REACTIONS (4)
  - Pyelonephritis acute [Recovered/Resolved]
  - Pyelonephritis acute [Recovered/Resolved]
  - Urinary tract infection [Recovered/Resolved]
  - Febrile neutropenia [Recovered/Resolved]

NARRATIVE: CASE EVENT DATE: 20230320
